FAERS Safety Report 24857686 (Version 2)
Quarter: 2025Q1

REPORT INFORMATION
  Report Type: Report from Study
  Country: DE (occurrence: DE)
  Receive Date: 20250117
  Receipt Date: 20250123
  Transmission Date: 20250409
  Serious: Yes (Other)
  Sender: ALEXION PHARMACEUTICALS
  Company Number: DE-ASTRAZENECA-202501GLO011089DE

PATIENT
  Age: 65 Year
  Weight: 60 kg

DRUGS (8)
  1. DURVALUMAB [Suspect]
     Active Substance: DURVALUMAB
     Indication: Hepatobiliary cancer
  2. GEMCITABINE [Suspect]
     Active Substance: GEMCITABINE
     Indication: Hepatobiliary cancer
  3. GEMCITABINE [Suspect]
     Active Substance: GEMCITABINE
  4. GEMCITABINE [Suspect]
     Active Substance: GEMCITABINE
  5. GEMCITABINE [Suspect]
     Active Substance: GEMCITABINE
  6. CISPLATIN [Suspect]
     Active Substance: CISPLATIN
     Indication: Hepatobiliary cancer
  7. CISPLATIN [Suspect]
     Active Substance: CISPLATIN
  8. CISPLATIN [Suspect]
     Active Substance: CISPLATIN

REACTIONS (2)
  - Diarrhoea [Recovered/Resolved]
  - Leukopenia [Recovered/Resolved]
